FAERS Safety Report 20842779 (Version 1)
Quarter: 2022Q2

REPORT INFORMATION
  Report Type: Spontaneous
  Country: US (occurrence: US)
  Receive Date: 20220518
  Receipt Date: 20220518
  Transmission Date: 20220721
  Serious: No
  Sender: FDA-Public Use
  Company Number: US-BRISTOL-MYERS SQUIBB COMPANY-2022-040272

PATIENT
  Age: 76 Year
  Sex: Female
  Weight: 90.26 kg

DRUGS (1)
  1. REVLIMID [Suspect]
     Active Substance: LENALIDOMIDE
     Indication: Nodal marginal zone B-cell lymphoma
     Dosage: 7 DAYS OFF
     Route: 048
     Dates: start: 20210219, end: 20220321

REACTIONS (2)
  - Diarrhoea [Not Recovered/Not Resolved]
  - Intentional product use issue [Unknown]
